FAERS Safety Report 5679340-4 (Version None)
Quarter: 2008Q1

REPORT INFORMATION
  Report Type: 
  Country: None (occurrence: None)
  Receive Date: 20080325
  Receipt Date: 20080317
  Transmission Date: 20080703
  Serious: Yes (Hospitalization)
  Sender: FDA-Public Use
  Company Number: FR-ROCHE-552031

PATIENT
  Age: 73 Year
  Sex: Female

DRUGS (9)
  1. ROCEPHIN [Suspect]
     Route: 065
     Dates: end: 20080208
  2. COTAREG [Suspect]
     Indication: DRUG USE FOR UNKNOWN INDICATION
     Route: 065
  3. FELDENE [Suspect]
     Indication: DRUG USE FOR UNKNOWN INDICATION
     Dosage: STOPPED 8 TO 15 DAYS BEFORE THE INTRODUCTION OF CEFTRIAXONE
     Route: 065
  4. INIPOMP [Concomitant]
  5. CALCIUM [Concomitant]
  6. VITAMINE D [Concomitant]
  7. LERCAN [Concomitant]
  8. KARDEGIC [Concomitant]
  9. 1 CONCOMITANT DRUG [Concomitant]
     Dosage: SYSTEMIC CORTICOID
     Dates: end: 20080202

REACTIONS (3)
  - GRANULOMA [None]
  - NEPHRITIS INTERSTITIAL [None]
  - RENAL FAILURE ACUTE [None]
